FAERS Safety Report 6729911-9 (Version None)
Quarter: 2010Q2

REPORT INFORMATION
  Report Type: 
  Country: None (occurrence: None)
  Receive Date: 20100518
  Receipt Date: 20100505
  Transmission Date: 20101027
  Serious: Yes (Other)
  Sender: FDA-Public Use
  Company Number: PHHY2010US29146

PATIENT
  Sex: Female

DRUGS (2)
  1. ZOMETA [Suspect]
     Indication: MULTIPLE MYELOMA
     Dosage: UNK
     Route: 042
     Dates: start: 20061201
  2. CHEMOTHERAPEUTICS NOS [Suspect]

REACTIONS (5)
  - BONE LESION [None]
  - PAIN [None]
  - RADIOTHERAPY [None]
  - TREATMENT FAILURE [None]
  - TUMOUR MARKER INCREASED [None]
